FAERS Safety Report 5443390-3 (Version None)
Quarter: 2007Q3

REPORT INFORMATION
  Report Type: 
  Country: None (occurrence: None)
  Receive Date: 20070905
  Receipt Date: 20070828
  Transmission Date: 20080115
  Serious: Yes (Hospitalization)
  Sender: FDA-Public Use
  Company Number: B0475743A

PATIENT
  Age: 51 Year
  Sex: Female
  Weight: 76 kg

DRUGS (3)
  1. LAPATINIB [Suspect]
     Dosage: 1250MG PER DAY
     Route: 048
     Dates: start: 20070601
  2. CAPECITABINE [Suspect]
     Dosage: 3600MG PER DAY
     Route: 048
     Dates: start: 20070601
  3. KALEORID [Concomitant]
     Dosage: 1TAB PER DAY
     Route: 048
     Dates: start: 20070607

REACTIONS (3)
  - DYSPNOEA [None]
  - PNEUMONIA [None]
  - PYREXIA [None]
